FAERS Safety Report 14554687 (Version 1)
Quarter: 2018Q1

REPORT INFORMATION
  Report Type: Spontaneous
  Country: US (occurrence: US)
  Receive Date: 20180220
  Receipt Date: 20180220
  Transmission Date: 20180509
  Serious: Yes (Death)
  Sender: FDA-Public Use
  Company Number: None

PATIENT
  Age: 29 Year
  Sex: Female

DRUGS (2)
  1. MITRAGYNA SPECIOSA KORTHALS (BOTANIC NAME) [Suspect]
     Active Substance: MITRAGYNINE\HERBALS
  2. BENZODIAZEPINES [Suspect]
     Active Substance: BENZODIAZEPINE

REACTIONS (6)
  - Metabolic acidosis [None]
  - Substance abuse [None]
  - Body temperature decreased [None]
  - Haemodynamic instability [None]
  - Cardio-respiratory arrest [None]
  - Pneumonia aspiration [None]
